FAERS Safety Report 23147892 (Version 11)
Quarter: 2025Q3

REPORT INFORMATION
  Report Type: Report from Study
  Country: US (occurrence: US)
  Receive Date: 20231106
  Receipt Date: 20250714
  Transmission Date: 20251021
  Serious: Yes (Other)
  Sender: NOVARTIS
  Company Number: US-002147023-NVSC2023US236253

PATIENT
  Sex: Male
  Weight: 85.261 kg

DRUGS (3)
  1. KESIMPTA [Suspect]
     Active Substance: OFATUMUMAB
     Indication: Multiple sclerosis
     Route: 065
  2. KESIMPTA [Suspect]
     Active Substance: OFATUMUMAB
     Dosage: 20 MG, QMO
     Route: 065
  3. TESTOSTERONE [Concomitant]
     Active Substance: TESTOSTERONE
     Indication: Product used for unknown indication
     Route: 065

REACTIONS (16)
  - Progressive multifocal leukoencephalopathy [Unknown]
  - JC virus infection [Unknown]
  - Thyroid disorder [Unknown]
  - Blood testosterone decreased [Unknown]
  - Throat irritation [Unknown]
  - Dyspepsia [Unknown]
  - Gait disturbance [Unknown]
  - Toothache [Unknown]
  - Diplopia [Unknown]
  - Visual impairment [Unknown]
  - Hormone level abnormal [Unknown]
  - Memory impairment [Unknown]
  - Tinea cruris [Unknown]
  - Personality change [Unknown]
  - Mood swings [Unknown]
  - Product availability issue [Unknown]
